FAERS Safety Report 6743229-X (Version None)
Quarter: 2010Q2

REPORT INFORMATION
  Report Type: 
  Country: None (occurrence: None)
  Receive Date: 20100527
  Receipt Date: 20100524
  Transmission Date: 20101027
  Serious: Yes (Other)
  Sender: FDA-Public Use
  Company Number: US-RB-005953-10

PATIENT
  Age: 22 Year
  Sex: Female

DRUGS (5)
  1. SUBOXONE [Suspect]
     Route: 060
     Dates: start: 20100319, end: 20100326
  2. XANAX [Suspect]
     Route: 048
     Dates: start: 20100101
  3. XANAX [Suspect]
     Dosage: DOSING DETAILS UNKNOWN
     Route: 065
     Dates: end: 20100326
  4. NORTRIPTYLINE HCL [Suspect]
     Indication: DEPRESSION
     Dosage: DOSING DETAILS UNKNOWN
     Route: 065
     Dates: end: 20100326
  5. NORTRIPTYLINE HCL [Suspect]
     Indication: ANXIETY
     Dosage: DOSING DETAILS UNKNOWN
     Route: 065
     Dates: end: 20100326

REACTIONS (1)
  - CONVULSION [None]
